FAERS Safety Report 18598631 (Version 3)
Quarter: 2022Q1

REPORT INFORMATION
  Report Type: Spontaneous
  Country: JP (occurrence: JP)
  Receive Date: 20201210
  Receipt Date: 20220211
  Transmission Date: 20220423
  Serious: Yes (Hospitalization, Other)
  Sender: FDA-Public Use
  Company Number: JP-MSD-M2020-18240

PATIENT
  Age: 65 Year
  Sex: Male
  Weight: 68 kg

DRUGS (2)
  1. KEYTRUDA [Suspect]
     Active Substance: PEMBROLIZUMAB
     Indication: Non-small cell lung cancer stage IV
     Dosage: 200 MILLIGRAM, Q3W
     Route: 041
     Dates: start: 20171129, end: 20200813
  2. MAGNESIUM OXIDE [Concomitant]
     Active Substance: MAGNESIUM OXIDE
     Indication: Dyschezia
     Dosage: 330 MILLIGRAM, BID
     Route: 048
     Dates: end: 20181102

REACTIONS (8)
  - Ketoacidosis [Recovered/Resolved with Sequelae]
  - Fulminant type 1 diabetes mellitus [Recovered/Resolved with Sequelae]
  - Malaise [Recovered/Resolved]
  - Vomiting [Recovered/Resolved]
  - Sputum retention [Recovered/Resolved]
  - Contusion [Recovered/Resolved]
  - Arthralgia [Recovering/Resolving]
  - Cough [Recovered/Resolved]

NARRATIVE: CASE EVENT DATE: 20171203
